FAERS Safety Report 6787530-2 (Version None)
Quarter: 2010Q2

REPORT INFORMATION
  Report Type: 
  Country: None (occurrence: None)
  Receive Date: 20100623
  Receipt Date: 20090310
  Transmission Date: 20101027
  Serious: Yes (Other)
  Sender: FDA-Public Use
  Company Number: US-PFIZER INC-2006058555

PATIENT
  Sex: Female
  Weight: 87 kg

DRUGS (13)
  1. PROVERA [Suspect]
     Indication: HORMONE REPLACEMENT THERAPY
     Dosage: 2.5 MG, UNK
     Route: 048
     Dates: start: 19880101, end: 19970101
  2. PROVERA [Suspect]
     Indication: MENOPAUSAL SYMPTOMS
  3. PREMARIN [Suspect]
     Indication: HORMONE REPLACEMENT THERAPY
     Dosage: 0.625 MG, UNK
     Route: 065
     Dates: start: 19880101, end: 19970101
  4. PREMARIN [Suspect]
     Indication: MENOPAUSAL SYMPTOMS
  5. PREMPRO [Suspect]
     Indication: HORMONE REPLACEMENT THERAPY
     Dosage: 0.625/2.5 MG
     Route: 065
     Dates: start: 19970101, end: 20040101
  6. PREMPRO [Suspect]
     Indication: MENOPAUSAL SYMPTOMS
  7. HYDROCHLOROTHIAZIDE [Concomitant]
     Indication: HYPERTENSION
     Dosage: UNK
     Dates: start: 20020101
  8. INDOMETHACIN [Concomitant]
     Indication: ARTHRALGIA
     Dosage: UNK
     Dates: start: 19970101, end: 20060101
  9. PREVACID [Concomitant]
     Dosage: UNK
     Dates: start: 20020101, end: 20060101
  10. LISINOPRIL [Concomitant]
     Indication: HYPERTENSION
     Dosage: 20 MG, 1X/DAY
     Dates: start: 20020101
  11. IBUPROFEN [Concomitant]
     Indication: PAIN
     Dosage: 800 MG, UNK
     Dates: start: 19970101
  12. TYLENOL [Concomitant]
     Indication: PAIN
     Dosage: UNK
     Dates: start: 20020101
  13. AMBIEN [Concomitant]
     Indication: SLEEP DISORDER
     Dosage: UNK
     Dates: start: 20020101

REACTIONS (1)
  - BREAST CANCER FEMALE [None]
